FAERS Safety Report 12308856 (Version 1)
Quarter: 2016Q2

REPORT INFORMATION
  Report Type: Spontaneous
  Country: US (occurrence: None)
  Receive Date: 20160426
  Receipt Date: 20160426
  Transmission Date: 20160815
  Serious: No
  Sender: FDA-Public Use
  Company Number: None

PATIENT

DRUGS (1)
  1. SCOPOLAMINE, 1.5MG BAXTER [Suspect]
     Active Substance: SCOPOLAMINE
     Dosage: 1.5 MG Q72H TRANSDERMAL
     Route: 062

REACTIONS (1)
  - Product adhesion issue [None]

NARRATIVE: CASE EVENT DATE: 20160425
